FAERS Safety Report 8447900 (Version 7)
Quarter: 2012Q4

REPORT INFORMATION
  Report Type: 
  Country: US (occurrence: US)
  Receive Date: 20120308
  Receipt Date: 20121015
  Transmission Date: 20130627
  Serious: Yes (Hospitalization, Other)
  Sender: FDA-Public Use
  Company Number: US-009507513-1203USA00775

PATIENT

DRUGS (3)
  1. FOSAMAX [Suspect]
     Indication: OSTEOPOROSIS
     Dosage: 70 mg, QW
     Route: 048
     Dates: start: 2001, end: 201012
  2. SYNTHROID [Concomitant]
     Dosage: 100 ?g, qd
     Route: 048
     Dates: start: 1975
  3. OCUVITE [Concomitant]
     Dosage: UNK UNK, qd
     Route: 048
     Dates: start: 199607

REACTIONS (43)
  - Torus fracture [Unknown]
  - Femur fracture [Unknown]
  - Orthostatic hypotension [Unknown]
  - Syncope [Unknown]
  - Haemorrhagic anaemia [Unknown]
  - Uterine disorder [Unknown]
  - Confusional state [Unknown]
  - Palpitations [Unknown]
  - Monoparesis [Unknown]
  - Gait disturbance [Unknown]
  - Exercise tolerance decreased [Unknown]
  - Dyspnoea [Unknown]
  - Cough [Unknown]
  - Goitre [Unknown]
  - Constipation [Unknown]
  - Low turnover osteopathy [Unknown]
  - Tooth disorder [Unknown]
  - Adverse event [Unknown]
  - Hypertension [Unknown]
  - Cataract [Unknown]
  - Hypothyroidism [Unknown]
  - Osteoarthritis [Unknown]
  - Diverticulum intestinal [Unknown]
  - Benign breast neoplasm [Unknown]
  - Patella fracture [Unknown]
  - Coronary artery disease [Unknown]
  - Spinal column stenosis [Unknown]
  - Spinal osteoarthritis [Unknown]
  - Osteoarthritis [Unknown]
  - Paraesthesia [Unknown]
  - Temporomandibular joint syndrome [Unknown]
  - Tooth extraction [Unknown]
  - Wisdom teeth removal [Unknown]
  - Bone disorder [Unknown]
  - Pain in extremity [None]
  - Multiple fractures [None]
  - Fracture displacement [None]
  - Pathological fracture [None]
  - Fall [None]
  - Musculoskeletal discomfort [None]
  - Dysstasia [None]
  - Balance disorder [None]
  - Cardiac disorder [None]
